FAERS Safety Report 10777946 (Version 2)
Quarter: 2015Q2

REPORT INFORMATION
  Report Type: Other
  Country: US (occurrence: US)
  Receive Date: 20150209
  Receipt Date: 20150427
  Transmission Date: 20150821
  Serious: No
  Sender: FDA-Public Use
  Company Number: US-UNITED THERAPEUTICS-UNT-2014-009449

PATIENT
  Sex: Male
  Weight: 73.92 kg

DRUGS (8)
  1. ORENITRAM [Suspect]
     Active Substance: TREPROSTINIL
     Dosage: 1.25 MG, Q12H
     Route: 048
     Dates: start: 20141104
  2. LETAIRIS [Concomitant]
     Active Substance: AMBRISENTAN
     Indication: PRODUCT USED FOR UNKNOWN INDICATION
  3. ORENITRAM [Suspect]
     Active Substance: TREPROSTINIL
     Dosage: 1 MG, Q12H
     Route: 048
     Dates: start: 20140917
  4. ORENITRAM [Suspect]
     Active Substance: TREPROSTINIL
     Indication: PULMONARY HYPERTENSION
     Dosage: 0.875 MG, BID
     Route: 048
     Dates: start: 20140914
  5. ORENITRAM [Suspect]
     Active Substance: TREPROSTINIL
     Indication: PORTAL HYPERTENSION
     Dosage: 0.875 MG, BID
     Route: 048
     Dates: start: 20140914
  6. ORENITRAM [Suspect]
     Active Substance: TREPROSTINIL
     Dosage: 1.375 MG, Q12H
     Route: 048
     Dates: start: 20140917
  7. ORENITRAM [Suspect]
     Active Substance: TREPROSTINIL
     Dosage: 0.75 MG, Q8H
     Route: 048
  8. ORENITRAM [Suspect]
     Active Substance: TREPROSTINIL
     Dosage: 0.25 MG, Q12H
     Route: 048
     Dates: start: 20141104

REACTIONS (7)
  - Pain in extremity [Not Recovered/Not Resolved]
  - Pyrexia [Unknown]
  - Neuralgia [Not Recovered/Not Resolved]
  - Off label use [Unknown]
  - Bone pain [Unknown]
  - Flushing [Not Recovered/Not Resolved]
  - Diarrhoea [Not Recovered/Not Resolved]

NARRATIVE: CASE EVENT DATE: 2014
